FAERS Safety Report 12706105 (Version 2)
Quarter: 2016Q3

REPORT INFORMATION
  Report Type: Spontaneous
  Country: US (occurrence: US)
  Receive Date: 20160901
  Receipt Date: 20160901
  Transmission Date: 20161109
  Serious: No
  Sender: FDA-Public Use
  Company Number: US-JAZZ-2016-US-007917

PATIENT

DRUGS (38)
  1. NORCO [Concomitant]
     Active Substance: ACETAMINOPHEN\HYDROCODONE BITARTRATE
  2. BREO ELLIPTA [Concomitant]
     Active Substance: FLUTICASONE FUROATE\VILANTEROL TRIFENATATE
  3. NYSTATIN. [Concomitant]
     Active Substance: NYSTATIN
  4. FISH OIL [Concomitant]
     Active Substance: FISH OIL
  5. MAGNESIUM OXIDE. [Concomitant]
     Active Substance: MAGNESIUM OXIDE
  6. MUCINEX [Concomitant]
     Active Substance: GUAIFENESIN
  7. SINGULAIR [Concomitant]
     Active Substance: MONTELUKAST SODIUM
  8. METFORMIN HCL [Concomitant]
     Active Substance: METFORMIN HYDROCHLORIDE
  9. DYAZIDE [Concomitant]
     Active Substance: HYDROCHLOROTHIAZIDE\TRIAMTERENE
  10. SONATA [Concomitant]
     Active Substance: ZALEPLON
  11. SYNTHROID [Concomitant]
     Active Substance: LEVOTHYROXINE SODIUM
  12. ALBUTEROL SULFATE. [Concomitant]
     Active Substance: ALBUTEROL SULFATE
  13. VIVACTIL [Concomitant]
     Active Substance: PROTRIPTYLINE HYDROCHLORIDE
  14. HYDROCORTISONE. [Concomitant]
     Active Substance: HYDROCORTISONE
  15. PREDNISONE. [Concomitant]
     Active Substance: PREDNISONE
  16. SYMBICORT [Concomitant]
     Active Substance: BUDESONIDE\FORMOTEROL FUMARATE DIHYDRATE
  17. EXCEDRIN EXTRA STRENGTH [Concomitant]
     Active Substance: ACETAMINOPHEN\ASPIRIN\CAFFEINE
  18. ALLEGRA ALLERGY [Concomitant]
     Active Substance: FEXOFENADINE HYDROCHLORIDE
  19. XYREM [Suspect]
     Active Substance: SODIUM OXYBATE
     Dosage: 4.25 G, BID
     Route: 048
  20. ZOLOFT [Suspect]
     Active Substance: SERTRALINE HYDROCHLORIDE
     Indication: PRODUCT USED FOR UNKNOWN INDICATION
     Dosage: UNK
     Dates: start: 20141218
  21. VITAMIN B12 [Concomitant]
     Active Substance: CYANOCOBALAMIN
  22. ALEVE [Concomitant]
     Active Substance: NAPROXEN SODIUM
  23. VICTOZA [Concomitant]
     Active Substance: LIRAGLUTIDE
  24. CONCERTA [Concomitant]
     Active Substance: METHYLPHENIDATE HYDROCHLORIDE
  25. OMEPRAZOLE. [Concomitant]
     Active Substance: OMEPRAZOLE
  26. ALBUTEROL. [Concomitant]
     Active Substance: ALBUTEROL
  27. XYREM [Suspect]
     Active Substance: SODIUM OXYBATE
     Indication: NARCOLEPSY
     Dosage: 2.25 G, BID
     Route: 048
     Dates: start: 201501, end: 201501
  28. ASTELIN [Concomitant]
     Active Substance: AZELASTINE HYDROCHLORIDE
  29. RITALIN [Concomitant]
     Active Substance: METHYLPHENIDATE HYDROCHLORIDE
  30. VITAMIN D3 [Concomitant]
     Active Substance: CHOLECALCIFEROL
  31. HYDROCODONE [Concomitant]
     Active Substance: HYDROCODONE
  32. SUMATRIPTAN SUCCINATE. [Concomitant]
     Active Substance: SUMATRIPTAN SUCCINATE
  33. FLONASE [Concomitant]
     Active Substance: FLUTICASONE PROPIONATE
  34. XYREM [Suspect]
     Active Substance: SODIUM OXYBATE
     Dosage: DOSE ADJUSTMENTS
     Route: 048
  35. CRESTOR [Concomitant]
     Active Substance: ROSUVASTATIN CALCIUM
  36. NOVOLOG [Concomitant]
     Active Substance: INSULIN ASPART
  37. SKELAXIN [Concomitant]
     Active Substance: METAXALONE
  38. MULTIVITAMINS [Concomitant]
     Active Substance: VITAMINS

REACTIONS (3)
  - Stress [Unknown]
  - Somnambulism [Unknown]
  - Depression [Unknown]

NARRATIVE: CASE EVENT DATE: 2015
